FAERS Safety Report 5352692-0 (Version None)
Quarter: 2007Q2

REPORT INFORMATION
  Report Type: 
  Country: None (occurrence: None)
  Receive Date: 20070518
  Receipt Date: 20070319
  Transmission Date: 20071010
  Serious: No
  Sender: FDA-Public Use
  Company Number: TPA2007A00648

PATIENT

DRUGS (1)
  1. ROZEREM [Suspect]
     Dosage: 16 MG, PER ORAL
     Route: 048

REACTIONS (2)
  - NO ADVERSE EFFECT [None]
  - PRESCRIBED OVERDOSE [None]
